FAERS Safety Report 6900973-9 (Version None)
Quarter: 2010Q3

REPORT INFORMATION
  Report Type: 
  Country: None (occurrence: None)
  Receive Date: 20100803
  Receipt Date: 20100720
  Transmission Date: 20110219
  Serious: Yes (Life-Threatening, Other)
  Sender: FDA-Public Use
  Company Number: B0380833A

PATIENT
  Sex: Female
  Weight: 50 kg

DRUGS (6)
  1. GW679769 [Suspect]
     Dosage: 100MG PER DAY
     Route: 048
     Dates: start: 20050511
  2. ONDANSETRON [Suspect]
     Dosage: 4MG PER DAY
     Route: 042
     Dates: start: 20050511
  3. FRAXIPARINE [Concomitant]
     Dosage: 8UNIT PER DAY
     Route: 058
     Dates: start: 20050510, end: 20050510
  4. MORPHINE [Concomitant]
     Route: 042
     Dates: start: 20050511
  5. PERFUSALGAN [Concomitant]
  6. BIOFLOR [Concomitant]

REACTIONS (3)
  - HAEMORRHAGE [None]
  - POST PROCEDURAL DISCHARGE [None]
  - SHOCK HAEMORRHAGIC [None]
